FAERS Safety Report 18642645 (Version 1)
Quarter: 2020Q4

REPORT INFORMATION
  Report Type: Spontaneous
  Country: US (occurrence: US)
  Receive Date: 20201221
  Receipt Date: 20201221
  Transmission Date: 20210114
  Serious: No
  Sender: FDA-Public Use
  Company Number: US-SA-2020SA361681

PATIENT

DRUGS (1)
  1. TOUJEO [Suspect]
     Active Substance: INSULIN GLARGINE
     Dosage: 24 IU, QD
     Route: 065
     Dates: start: 20181216

REACTIONS (4)
  - Hypoacusis [Unknown]
  - Product use issue [Unknown]
  - Dysarthria [Unknown]
  - Confusional state [Unknown]

NARRATIVE: CASE EVENT DATE: 20201216
